FAERS Safety Report 7034369-9 (Version None)
Quarter: 2010Q4

REPORT INFORMATION
  Report Type: 
  Country: None (occurrence: None)
  Receive Date: 20101008
  Receipt Date: 20101001
  Transmission Date: 20110411
  Serious: Yes (Death)
  Sender: FDA-Public Use
  Company Number: US-JNJFOC-20100207220

PATIENT
  Sex: Female
  Weight: 99.79 kg

DRUGS (10)
  1. DURAGESIC-100 [Suspect]
     Indication: HEADACHE
     Route: 062
  2. DURAGESIC-100 [Suspect]
     Indication: BACK PAIN
     Route: 062
  3. FENTANYL CITRATE [Suspect]
     Indication: PRODUCT USED FOR UNKNOWN INDICATION
     Route: 062
  4. VICODIN [Suspect]
     Indication: PRODUCT USED FOR UNKNOWN INDICATION
     Route: 065
  5. DARVOCET (PROPOXYPHENE NAPSYLATE W/ACETAMINOPHENE) [Suspect]
     Indication: PRODUCT USED FOR UNKNOWN INDICATION
     Route: 065
  6. DIPHENHYDRAMINE [Concomitant]
     Route: 065
  7. DULOXETINE [Concomitant]
     Route: 065
  8. FLUOXETINE [Concomitant]
     Route: 065
  9. NORTRIPTYLINE [Concomitant]
     Route: 065
  10. HYDROCODONE [Concomitant]
     Route: 065

REACTIONS (3)
  - DEPRESSION [None]
  - DRUG TOXICITY [None]
  - IMPULSIVE BEHAVIOUR [None]
